FAERS Safety Report 8381933-0 (Version None)
Quarter: 2012Q2

REPORT INFORMATION
  Report Type: 
  Country: None (occurrence: None)
  Receive Date: 20120524
  Receipt Date: 20120509
  Transmission Date: 20120825
  Serious: Yes (Hospitalization, Other)
  Sender: FDA-Public Use
  Company Number: CA-JNJFOC-20120110811

PATIENT
  Sex: Female
  Weight: 54.5 kg

DRUGS (7)
  1. REMICADE [Suspect]
     Indication: CROHN'S DISEASE
     Route: 042
     Dates: start: 20110927
  2. COUMADIN [Concomitant]
     Route: 065
  3. CEPHALEXIN [Concomitant]
     Route: 065
  4. REMICADE [Suspect]
     Route: 042
     Dates: start: 20111214
  5. FLAGYL [Concomitant]
     Route: 065
  6. CIPROFLOXACIN HCL [Concomitant]
  7. IMURAN [Concomitant]
     Route: 065

REACTIONS (3)
  - FISTULA [None]
  - CELLULITIS [None]
  - ARTHRALGIA [None]
